FAERS Safety Report 9917569 (Version 6)
Quarter: 2016Q1

REPORT INFORMATION
  Report Type: Report from Study
  Country: FR (occurrence: FR)
  Receive Date: 20140221
  Receipt Date: 20160330
  Transmission Date: 20160526
  Serious: Yes (Hospitalization)
  Sender: FDA-Public Use
  Company Number: FR-SA-CLOF-1002366

PATIENT
  Age: 11 Year
  Sex: Female
  Weight: 36 kg

DRUGS (29)
  1. HYDROCORTISONE. [Suspect]
     Active Substance: HYDROCORTISONE
     Indication: ACUTE LYMPHOCYTIC LEUKAEMIA RECURRENT
     Dosage: 15 MG, QD
     Route: 065
     Dates: start: 20120905, end: 20120905
  2. LORAZEPAM. [Concomitant]
     Active Substance: LORAZEPAM
     Dosage: 80 MG, QD
     Dates: start: 20120610, end: 20120617
  3. ACETORPHAN [Concomitant]
     Dosage: 200 MG, QD
     Route: 065
     Dates: start: 20020922, end: 20121001
  4. MYCOPHENOLATE MOFETIL. [Concomitant]
     Active Substance: MYCOPHENOLATE MOFETIL
     Dosage: 20 MG, QD
     Dates: start: 20120609, end: 20120704
  5. FUROSEMIDE. [Concomitant]
     Active Substance: FUROSEMIDE
     Dosage: 20 MG, QD
     Route: 065
     Dates: start: 20121010, end: 20121016
  6. CYCLOPHOSPHAMIDE. [Suspect]
     Active Substance: CYCLOPHOSPHAMIDE
     Indication: ACUTE LYMPHOCYTIC LEUKAEMIA RECURRENT
     Dosage: 460 MG, QD; CYCLE 3
     Route: 065
     Dates: start: 20120907, end: 20120909
  7. ONDANSETRON HYDROCHLORIDE. [Concomitant]
     Active Substance: ONDANSETRON HYDROCHLORIDE
     Dosage: 16 MG, QD
     Dates: start: 20120609, end: 20120705
  8. CHLORPROMAZINE HYDROCHLORIDE. [Concomitant]
     Active Substance: CHLORPROMAZINE HYDROCHLORIDE
     Dosage: UNK
     Route: 042
     Dates: start: 20120616, end: 20120619
  9. SPASFON [Concomitant]
     Active Substance: PHLOROGLUCINOL
     Dosage: 80 MG, QD
     Route: 065
  10. EVOLTRA [Suspect]
     Active Substance: CLOFARABINE
     Indication: ACUTE LYMPHOCYTIC LEUKAEMIA RECURRENT
     Dosage: 46 MG, QD; D1-D5, CYCLE 2
     Route: 042
     Dates: start: 20120806, end: 20120810
  11. ETOPOSIDE. [Suspect]
     Active Substance: ETOPOSIDE
     Indication: ACUTE LYMPHOCYTIC LEUKAEMIA RECURRENT
     Dosage: 170 MG, QD; CYCLE 2
     Route: 065
     Dates: start: 20120806, end: 20120808
  12. MAGNE-B6 [Concomitant]
     Active Substance: MAGNESIUM LACTATE\PYRIDOXINE HYDROCHLORIDE
     Dosage: 4 G, QD
     Route: 065
     Dates: start: 20120921, end: 20120925
  13. EVOLTRA [Suspect]
     Active Substance: CLOFARABINE
     Indication: ACUTE LYMPHOCYTIC LEUKAEMIA RECURRENT
     Dosage: 46 MG, QD; D1-D5, CYCLE 3
     Route: 042
     Dates: start: 20120907, end: 20120911
  14. ETOPOSIDE. [Suspect]
     Active Substance: ETOPOSIDE
     Indication: ACUTE LYMPHOCYTIC LEUKAEMIA RECURRENT
     Dosage: 170 MG, QD; CYCLE 1
     Route: 065
     Dates: start: 20120609, end: 20120613
  15. METHOTREXATE [Suspect]
     Active Substance: METHOTREXATE
     Indication: ACUTE LYMPHOCYTIC LEUKAEMIA RECURRENT
     Dosage: 15 MG, QD
     Route: 037
     Dates: start: 20120609, end: 20120609
  16. AZITHROMYCIN ANHYDROUS. [Concomitant]
     Active Substance: AZITHROMYCIN ANHYDROUS
     Dosage: 10 MG, QD
     Route: 065
     Dates: start: 20120616, end: 20120617
  17. EVOLTRA [Suspect]
     Active Substance: CLOFARABINE
     Indication: ACUTE LYMPHOCYTIC LEUKAEMIA RECURRENT
     Dosage: 46 MG, QD; D1-D5, CYCLE 1
     Route: 042
     Dates: start: 20120609, end: 20120613
  18. AMIKACIN [Concomitant]
     Active Substance: AMIKACIN
     Dosage: 260 MG, BID
     Dates: start: 20100728, end: 20120729
  19. CYCLOPHOSPHAMIDE. [Suspect]
     Active Substance: CYCLOPHOSPHAMIDE
     Indication: ACUTE LYMPHOCYTIC LEUKAEMIA RECURRENT
     Dosage: 460 MG, QD; CYCLE 1
     Route: 065
     Dates: start: 20120609, end: 20120613
  20. CYCLOPHOSPHAMIDE. [Suspect]
     Active Substance: CYCLOPHOSPHAMIDE
     Indication: ACUTE LYMPHOCYTIC LEUKAEMIA RECURRENT
     Dosage: 460 MG, QD; CYCLE 2
     Route: 065
     Dates: start: 20120808, end: 20120808
  21. CYTARABINE. [Suspect]
     Active Substance: CYTARABINE
     Indication: ACUTE LYMPHOCYTIC LEUKAEMIA RECURRENT
     Dosage: 30 MG, ONCE
     Route: 037
     Dates: start: 20120725, end: 20120725
  22. CYTARABINE. [Suspect]
     Active Substance: CYTARABINE
     Indication: ACUTE LYMPHOCYTIC LEUKAEMIA RECURRENT
     Dosage: 30 MG, ONCE
     Route: 065
     Dates: start: 20120905, end: 20120905
  23. HYDROCORTISONE. [Suspect]
     Active Substance: HYDROCORTISONE
     Indication: ACUTE LYMPHOCYTIC LEUKAEMIA RECURRENT
     Dosage: 15 MG, QD
     Route: 037
     Dates: start: 20120725, end: 20120725
  24. HYDROCORTISONE. [Suspect]
     Active Substance: HYDROCORTISONE
     Indication: ACUTE LYMPHOCYTIC LEUKAEMIA RECURRENT
     Dosage: 15 MG, QD
     Route: 065
     Dates: start: 20120609, end: 20120609
  25. SOLU-MEDROL [Concomitant]
     Active Substance: METHYLPREDNISOLONE SODIUM SUCCINATE
     Dosage: 10 MG, QD
     Route: 065
     Dates: start: 20120616, end: 20120617
  26. ETOPOSIDE. [Suspect]
     Active Substance: ETOPOSIDE
     Indication: ACUTE LYMPHOCYTIC LEUKAEMIA RECURRENT
     Dosage: 170 MG, QD; CYCLE 3
     Route: 065
     Dates: start: 20120907, end: 20120909
  27. CYCLOPHOSPHAMIDE. [Suspect]
     Active Substance: CYCLOPHOSPHAMIDE
     Indication: ACUTE LYMPHOCYTIC LEUKAEMIA RECURRENT
     Dosage: 460 MG, QD; CYCLE 2
     Route: 065
     Dates: start: 20120806, end: 20120807
  28. ITRACONAZOLE. [Concomitant]
     Active Substance: ITRACONAZOLE
     Indication: PRODUCT USED FOR UNKNOWN INDICATION
     Dosage: 200 MG, QD
     Dates: start: 20120919, end: 20120922
  29. FUROSEMIDE. [Concomitant]
     Active Substance: FUROSEMIDE
     Dosage: 40 MG, UNK
     Route: 065
     Dates: start: 20121008, end: 20121010

REACTIONS (12)
  - Pyelonephritis [Recovered/Resolved]
  - Febrile neutropenia [Recovered/Resolved]
  - Pancytopenia [Recovered/Resolved]
  - Pleural effusion [Recovered/Resolved]
  - Chronic kidney disease [Not Recovered/Not Resolved]
  - Thrombocytopenia [Recovered/Resolved]
  - Pericardial effusion [Recovered/Resolved]
  - Pneumonia [Recovered/Resolved]
  - Sodium retention [Recovered/Resolved]
  - Escherichia sepsis [Recovered/Resolved]
  - Febrile neutropenia [Recovered/Resolved]
  - Mucosal inflammation [Recovered/Resolved]

NARRATIVE: CASE EVENT DATE: 20120616
